FAERS Safety Report 7513930-9 (Version None)
Quarter: 2011Q2

REPORT INFORMATION
  Report Type: 
  Country: None (occurrence: None)
  Receive Date: 20110531
  Receipt Date: 20110419
  Transmission Date: 20111010
  Serious: Yes (Other)
  Sender: FDA-Public Use
  Company Number: PHHY2011SE32692

PATIENT
  Sex: Female

DRUGS (1)
  1. ESIDRIX [Suspect]
     Dosage: 25 MG, QD

REACTIONS (2)
  - HYPERTENSION [None]
  - HEART RATE INCREASED [None]
